FAERS Safety Report 25697815 (Version 1)
Quarter: 2025Q3

REPORT INFORMATION
  Report Type: Spontaneous
  Country: IN (occurrence: IN)
  Receive Date: 20250819
  Receipt Date: 20250819
  Transmission Date: 20251020
  Serious: Yes (Other)
  Sender: CHEPLAPHARM
  Company Number: IN-ROCHE-1660538

PATIENT
  Age: 60 Year
  Sex: Male

DRUGS (7)
  1. CAPECITABINE [Suspect]
     Active Substance: CAPECITABINE
     Indication: Oesophageal cancer metastatic
     Dosage: 2-WEEKLY ON
     Route: 048
  2. CAPECITABINE [Suspect]
     Active Substance: CAPECITABINE
     Indication: Oesophageal cancer metastatic
     Route: 048
  3. CELECOXIB [Suspect]
     Active Substance: CELECOXIB
     Indication: Oesophageal cancer metastatic
     Dosage: 3RD WEEK OFF, DAILY
  4. CELECOXIB [Suspect]
     Active Substance: CELECOXIB
     Indication: Oesophageal cancer metastatic
  5. PACLITAXEL [Concomitant]
     Active Substance: PACLITAXEL
     Indication: Mucosal inflammation
  6. PACLITAXEL [Concomitant]
     Active Substance: PACLITAXEL
     Indication: Oesophageal cancer metastatic
  7. GEFITINIB [Concomitant]
     Active Substance: GEFITINIB
     Indication: Oesophageal cancer metastatic
     Dosage: DAILY DOSE: 250 MILLIGRAM

REACTIONS (4)
  - Mucormycosis [Unknown]
  - Diarrhoea [Recovered/Resolved]
  - Blood bilirubin increased [Unknown]
  - Hepatic enzyme increased [Unknown]
